FAERS Safety Report 6428679-3 (Version None)
Quarter: 2009Q4

REPORT INFORMATION
  Report Type: 
  Country: None (occurrence: None)
  Receive Date: 20091105
  Receipt Date: 20091027
  Transmission Date: 20100525
  Serious: Yes (Other)
  Sender: FDA-Public Use
  Company Number: JP-JNJFOC-20090803012

PATIENT
  Sex: Male
  Weight: 62 kg

DRUGS (9)
  1. RISPERDAL [Suspect]
     Indication: DELIRIUM
     Route: 048
     Dates: start: 20090131, end: 20090202
  2. SERENACE [Suspect]
     Route: 041
     Dates: start: 20090131
  3. SERENACE [Suspect]
     Indication: DELIRIUM
     Dosage: 5 MG AT 11:50 AM; 5 MG AT 11:30 PM
     Route: 041
     Dates: start: 20090131
  4. INSULIN [Concomitant]
     Indication: DRUG USE FOR UNKNOWN INDICATION
     Route: 065
  5. SOLDEM 3A [Concomitant]
     Indication: FLUID REPLACEMENT
     Route: 041
     Dates: start: 20090129, end: 20090131
  6. GLUACETO 35 [Concomitant]
     Indication: FLUID REPLACEMENT
     Route: 041
     Dates: start: 20090201, end: 20090206
  7. PIRETAZOL [Concomitant]
     Indication: INFECTION PROPHYLAXIS
     Route: 041
     Dates: start: 20090129, end: 20090204
  8. VITAMEDIN [Concomitant]
     Indication: VITAMIN SUPPLEMENTATION
     Route: 041
     Dates: start: 20090129, end: 20090206
  9. NAFAMOSTAT MESILATE [Concomitant]
     Indication: HAEMODIALYSIS
     Route: 065
     Dates: start: 20090122

REACTIONS (3)
  - DELIRIUM [None]
  - HYPOGLYCAEMIA [None]
  - OFF LABEL USE [None]
